FAERS Safety Report 12775413 (Version 2)
Quarter: 2016Q4

REPORT INFORMATION
  Report Type: Spontaneous
  Country: FR (occurrence: FR)
  Receive Date: 20160923
  Receipt Date: 20161027
  Transmission Date: 20170207
  Serious: Yes (Hospitalization)
  Sender: FDA-Public Use
  Company Number: FR-PFIZER INC-2016089445

PATIENT
  Age: 23 Year
  Sex: Male
  Weight: 72 kg

DRUGS (7)
  1. ETOPOSIDE TEVA [Suspect]
     Active Substance: ETOPOSIDE
     Indication: PRECURSOR T-LYMPHOBLASTIC LYMPHOMA/LEUKAEMIA
     Dosage: 140 MG, UNK
     Route: 041
     Dates: start: 20151218, end: 20151219
  2. ONDANSETRON ACCORD [Concomitant]
     Active Substance: ONDANSETRON
     Dosage: 8 MG, 2X/DAY
     Route: 041
     Dates: start: 20151218, end: 20151219
  3. ENDOXAN [Suspect]
     Active Substance: CYCLOPHOSPHAMIDE
     Indication: PRECURSOR T-LYMPHOBLASTIC LYMPHOMA/LEUKAEMIA
     Dosage: 970 MG, UNK
     Route: 041
     Dates: start: 20151218, end: 20151219
  4. METHOTREXATE (METHOTREXATE SODIUM) [Suspect]
     Active Substance: METHOTREXATE SODIUM
     Indication: PRECURSOR T-LYMPHOBLASTIC LYMPHOMA/LEUKAEMIA
     Dosage: 48 MG, UNK
     Route: 041
     Dates: start: 20151218, end: 20151218
  5. ARACYTINE [Suspect]
     Active Substance: CYTARABINE
     Indication: PRECURSOR T-LYMPHOBLASTIC LYMPHOMA/LEUKAEMIA
     Dosage: 40 MG, UNK
     Route: 024
     Dates: start: 20151218, end: 20151218
  6. DEPO-MEDROL [Suspect]
     Active Substance: METHYLPREDNISOLONE ACETATE
     Dosage: 40 MG, 1X/DAY
     Route: 037
     Dates: start: 20151218, end: 20151218
  7. METHOTREXATE BIODIM [Suspect]
     Active Substance: METHOTREXATE
     Indication: PRECURSOR T-LYMPHOBLASTIC LYMPHOMA/LEUKAEMIA
     Dosage: 15 MG, UNK
     Route: 024
     Dates: start: 20151218, end: 20151218

REACTIONS (4)
  - Febrile bone marrow aplasia [Recovered/Resolved]
  - Incorrect route of drug administration [Unknown]
  - General physical health deterioration [Unknown]
  - Staphylococcal bacteraemia [Recovered/Resolved]

NARRATIVE: CASE EVENT DATE: 201512
